FAERS Safety Report 8183215-9 (Version None)
Quarter: 2012Q1

REPORT INFORMATION
  Report Type: 
  Country: None (occurrence: None)
  Receive Date: 20120305
  Receipt Date: 20120229
  Transmission Date: 20120608
  Serious: Yes (Death)
  Sender: FDA-Public Use
  Company Number: US-ASTELLAS-2012US002301

PATIENT
  Sex: Male
  Weight: 82 kg

DRUGS (3)
  1. ERLOTINIB HYDROCHLORIDE [Suspect]
     Indication: BRAIN NEOPLASM
     Dosage: 150 MG, UID/QD
     Route: 048
     Dates: start: 20120130
  2. ARIXTRA [Concomitant]
     Indication: PRODUCT USED FOR UNKNOWN INDICATION
     Dosage: 7.5 MG/0.6ML UNKNOWN/D
     Route: 065
  3. TEMODAR [Concomitant]
     Indication: PRODUCT USED FOR UNKNOWN INDICATION
     Dosage: 140 MG, UNKNOWN/D
     Route: 065

REACTIONS (2)
  - OFF LABEL USE [None]
  - DEATH [None]
